FAERS Safety Report 24551227 (Version 1)
Quarter: 2024Q4

REPORT INFORMATION
  Report Type: Report from Study
  Country: IT (occurrence: IT)
  Receive Date: 20241025
  Receipt Date: 20241025
  Transmission Date: 20250115
  Serious: Yes (Life-Threatening)
  Sender: INCYTE
  Company Number: IT-002147023-NVSC2023IT065703

PATIENT

DRUGS (11)
  1. RUXOLITINIB [Suspect]
     Active Substance: RUXOLITINIB
     Indication: Myelofibrosis
     Dosage: UNK, QD (TOTAL DAILY DOSE: 40)
     Route: 065
     Dates: start: 20210820, end: 20210914
  2. RUXOLITINIB [Suspect]
     Active Substance: RUXOLITINIB
     Dosage: UNK, QD (TOTAL DAILY DOSE: 5)
     Route: 065
     Dates: start: 20210915, end: 20211021
  3. RUXOLITINIB [Suspect]
     Active Substance: RUXOLITINIB
     Dosage: UNK, QD (TOTAL DAILY DOSE: 10)
     Route: 065
     Dates: start: 20211022, end: 20211115
  4. RUXOLITINIB [Suspect]
     Active Substance: RUXOLITINIB
     Dosage: UNK, QD (TOTAL DAILY DOSE: 20)
     Route: 065
     Dates: start: 20211116, end: 20211212
  5. RUXOLITINIB [Suspect]
     Active Substance: RUXOLITINIB
     Dosage: UNK, QD (TOTAL DAILY DOSE: 10)
     Route: 065
     Dates: start: 20211213, end: 20211226
  6. RUXOLITINIB [Suspect]
     Active Substance: RUXOLITINIB
     Dosage: UNK, QD
     Route: 065
     Dates: start: 20211227, end: 20220102
  7. RUXOLITINIB [Suspect]
     Active Substance: RUXOLITINIB
     Dosage: UNK, QD, TOTAL DAILY DOSE: 10
     Route: 065
     Dates: start: 20220103
  8. RUXOLITINIB [Suspect]
     Active Substance: RUXOLITINIB
     Dosage: UNK, QD (TOTAL DAILY DOSE: 10)
     Route: 065
     Dates: start: 20230216, end: 20230223
  9. RUXOLITINIB [Suspect]
     Active Substance: RUXOLITINIB
     Dosage: UNK, QD (TOTAL DAILY DOSE: 5)
     Route: 065
     Dates: start: 20240214
  10. RUXOLITINIB [Suspect]
     Active Substance: RUXOLITINIB
     Dosage: UNK (OHG)
     Route: 048
     Dates: start: 20240223, end: 20240508
  11. RUXOLITINIB [Suspect]
     Active Substance: RUXOLITINIB
     Dosage: UNK (5 MG?2V/DIE)
     Route: 048
     Dates: start: 20240223, end: 20240508

REACTIONS (3)
  - Anaemia [Recovering/Resolving]
  - Cystitis [Recovered/Resolved]
  - Splenomegaly [Not Recovered/Not Resolved]

NARRATIVE: CASE EVENT DATE: 20210921
